FAERS Safety Report 5511785-5 (Version None)
Quarter: 2007Q4

REPORT INFORMATION
  Report Type: 
  Country: None (occurrence: None)
  Receive Date: 20071109
  Receipt Date: 20071101
  Transmission Date: 20080405
  Serious: Yes (Hospitalization)
  Sender: FDA-Public Use
  Company Number: NO-ABBOTT-07P-122-0421355-00

PATIENT
  Sex: Male

DRUGS (7)
  1. HUMIRA [Suspect]
     Indication: PSORIATIC ARTHROPATHY
     Route: 058
     Dates: start: 20050113, end: 20050701
  2. ETANERCEPT [Suspect]
     Indication: PSORIATIC ARTHROPATHY
     Route: 058
     Dates: start: 19990901, end: 20050601
  3. ETANERCEPT [Suspect]
     Route: 058
     Dates: start: 20070626, end: 20070810
  4. RITUXIMAB [Suspect]
     Indication: PSORIATIC ARTHROPATHY
     Route: 042
     Dates: start: 20061021, end: 20070626
  5. INFLIXIMAB [Suspect]
     Indication: PSORIATIC ARTHROPATHY
     Dates: start: 20050901, end: 20051201
  6. METHOTREXATE [Concomitant]
     Indication: PSORIATIC ARTHROPATHY
     Dates: end: 20070810
  7. PREDNISOLONE [Concomitant]
     Indication: PSORIATIC ARTHROPATHY
     Dosage: VARIOUS DOSES
     Dates: end: 20070810

REACTIONS (4)
  - ADVERSE EVENT [None]
  - DRUG EFFECT DECREASED [None]
  - DYSPHAGIA [None]
  - SQUAMOUS CELL CARCINOMA [None]
